FAERS Safety Report 7141841-X (Version None)
Quarter: 2010Q4

REPORT INFORMATION
  Report Type: 
  Country: None (occurrence: None)
  Receive Date: 20101207
  Receipt Date: 20101124
  Transmission Date: 20110411
  Serious: Yes (Other)
  Sender: FDA-Public Use
  Company Number: PHHY2010CA80110

PATIENT
  Sex: Female

DRUGS (1)
  1. ZOMETA [Suspect]
     Indication: BREAST CANCER
     Dosage: 4 MG EVERY 06 MONTHS
     Route: 042
     Dates: start: 20101117

REACTIONS (3)
  - DYSGEUSIA [None]
  - MASTECTOMY [None]
  - NASOPHARYNGITIS [None]
